FAERS Safety Report 4648486-1 (Version None)
Quarter: 2005Q2

REPORT INFORMATION
  Report Type: 
  Country: None (occurrence: None)
  Receive Date: 20050427
  Receipt Date: 20050412
  Transmission Date: 20051028
  Serious: Yes (Hospitalization)
  Sender: FDA-Public Use
  Company Number: DE_050415660

PATIENT
  Age: 63 Year
  Sex: Male
  Weight: 77 kg

DRUGS (13)
  1. GEMZAR [Suspect]
     Indication: NON-SMALL CELL LUNG CANCER
     Dosage: 2460 MG
     Dates: start: 20050311
  2. CARBOPLATIN [Concomitant]
  3. CISPLATIN [Concomitant]
  4. ACC LONG (ACETYLSYSTEINE M/G) [Concomitant]
  5. PREDNISOLONE [Concomitant]
  6. PANTOPRAZOLE SODIUM [Concomitant]
  7. VIGANTOLETTEN (COLECALCIFEROL) [Concomitant]
  8. BLOPRESS (CANDESARTAN CILEXETIL) [Concomitant]
  9. BRONCOHORETARD (THEOPHYLLINE) [Concomitant]
  10. BERODUAL [Concomitant]
  11. VITAMIN B-12 [Concomitant]
  12. FOLIC ACID [Concomitant]
  13. DEXAMETHASONE [Concomitant]

REACTIONS (4)
  - NAUSEA [None]
  - PNEUMONIA [None]
  - TINNITUS [None]
  - VOMITING [None]
